FAERS Safety Report 11093844 (Version 1)
Quarter: 2015Q2

REPORT INFORMATION
  Report Type: Report from Study
  Country: US (occurrence: US)
  Receive Date: 20150506
  Receipt Date: 20150506
  Transmission Date: 20150821
  Serious: Yes (Life-Threatening, Hospitalization)
  Sender: FDA-Public Use
  Company Number: US-009507513-1505USA001484

PATIENT
  Age: 45 Year
  Sex: Female
  Weight: 59 kg

DRUGS (7)
  1. VORINOSTAT [Suspect]
     Active Substance: VORINOSTAT
     Indication: ACUTE MYELOID LEUKAEMIA
     Dosage: 500 MG, TID ON DAYS 1-3
     Route: 048
     Dates: start: 20150407, end: 20150410
  2. IDARUBICIN HYDROCHLORIDE. [Suspect]
     Active Substance: IDARUBICIN HYDROCHLORIDE
     Indication: ACUTE MYELOID LEUKAEMIA
     Dosage: 12 MICROGRAM PER SQ METER, QD, OVER 15 MIN ON DAYS 4-6
     Route: 042
     Dates: start: 20150410, end: 20150411
  3. IDARUBICIN HYDROCHLORIDE. [Suspect]
     Active Substance: IDARUBICIN HYDROCHLORIDE
     Dosage: 12 MICROGRAM PER SQ METER, QD, OVER 15 MIN ON DAYS 4-6
     Route: 042
     Dates: start: 20140929, end: 20141001
  4. VORINOSTAT [Suspect]
     Active Substance: VORINOSTAT
     Dosage: 500 MG, TID ON DAYS 1-3
     Route: 048
     Dates: start: 20140926, end: 20140928
  5. CYTARABINE. [Suspect]
     Active Substance: CYTARABINE
     Indication: ACUTE MYELOID LEUKAEMIA
     Dosage: 1500 MG/M2, QD, CONTINUOUS IV INFUSION, ON DAYS 4-7
     Route: 042
     Dates: start: 20140410, end: 20140413
  6. METHAMPHETAMINE HYDROCHLORIDE. [Concomitant]
     Active Substance: METHAMPHETAMINE HYDROCHLORIDE
     Dosage: UNK
     Dates: start: 201504
  7. CYTARABINE. [Suspect]
     Active Substance: CYTARABINE
     Dosage: 1500 MG/M2, QD, CONTINUOUS IV INFUSION, ON DAYS 4-7
     Route: 042
     Dates: start: 20140929, end: 20141002

REACTIONS (4)
  - Sepsis [Unknown]
  - Febrile neutropenia [Unknown]
  - Platelet count decreased [Unknown]
  - Epistaxis [Unknown]

NARRATIVE: CASE EVENT DATE: 20150417
